FAERS Safety Report 4890467-7 (Version None)
Quarter: 2005Q4

REPORT INFORMATION
  Report Type: 
  Country: None (occurrence: None)
  Receive Date: 20051216
  Receipt Date: 20050818
  Transmission Date: 20060501
  Serious: No
  Sender: FDA-Public Use
  Company Number: BDI-007462

PATIENT
  Sex: Female
  Weight: 73 kg

DRUGS (2)
  1. MULTIHANCE [Suspect]
     Indication: DEAFNESS
     Dosage: 15 ML ONCE IV
     Route: 042
     Dates: start: 20050817, end: 20050817
  2. MULTIHANCE [Suspect]
     Indication: NUCLEAR MAGNETIC RESONANCE IMAGING
     Dosage: 15 ML ONCE IV
     Route: 042
     Dates: start: 20050817, end: 20050817

REACTIONS (4)
  - BURNING SENSATION [None]
  - ERYTHEMA [None]
  - RASH MACULAR [None]
  - SKIN TURGOR DECREASED [None]
